FAERS Safety Report 4850574-1 (Version None)
Quarter: 2005Q4

REPORT INFORMATION
  Report Type: 
  Country: None (occurrence: None)
  Receive Date: 20051208
  Receipt Date: 20051129
  Transmission Date: 20060501
  Serious: Yes (Death)
  Sender: FDA-Public Use
  Company Number: 800371

PATIENT
  Age: 51 Year
  Sex: Male
  Weight: 57.8 kg

DRUGS (12)
  1. EXTRANEAL  (ICODEXTRIN 7.5%) [Suspect]
     Indication: RENAL FAILURE CHRONIC
     Dosage: 2000 ML; EVERY DAY; IP
     Route: 033
     Dates: start: 20040723, end: 20040924
  2. DIANEAL PD4 ULTRABAG [Concomitant]
  3. ESPO [Concomitant]
  4. ALFAROL [Concomitant]
  5. TANKARU [Concomitant]
  6. FERROMIA [Concomitant]
  7. RENIVACE [Concomitant]
  8. VALSARTAN [Concomitant]
  9. CARDENALIN [Concomitant]
  10. ARTIST [Concomitant]
  11. MINOCYCLINE HCL [Concomitant]
  12. LOXONIN [Concomitant]

REACTIONS (5)
  - CEREBRAL HAEMORRHAGE [None]
  - CONDITION AGGRAVATED [None]
  - HYPERTENSION [None]
  - HYPERTENSIVE ENCEPHALOPATHY [None]
  - VISUAL ACUITY REDUCED [None]
